FAERS Safety Report 8235008-1 (Version None)
Quarter: 2012Q1

REPORT INFORMATION
  Report Type: 
  Country: None (occurrence: None)
  Receive Date: 20120326
  Receipt Date: 20120322
  Transmission Date: 20120608
  Serious: No
  Sender: FDA-Public Use
  Company Number: US-BAYER-2012-029002

PATIENT
  Age: 38 Year
  Sex: Female

DRUGS (2)
  1. MAGNEVIST [Suspect]
     Indication: NUCLEAR MAGNETIC RESONANCE IMAGING BRAIN
     Dosage: 15 ML, HS
  2. MAGNEVIST [Suspect]
     Indication: ANGIOGRAM

REACTIONS (2)
  - RASH [None]
  - PRURITUS [None]
